FAERS Safety Report 24048751 (Version 1)
Quarter: 2024Q3

REPORT INFORMATION
  Report Type: Other
  Country: US (occurrence: US)
  Receive Date: 20240704
  Receipt Date: 20240704
  Transmission Date: 20241017
  Serious: Yes (Death)
  Sender: BIONPHARMA
  Company Number: US-Bion-013361

PATIENT
  Age: 17 Year
  Sex: Male

DRUGS (3)
  1. AMANTADINE HYDROCHLORIDE [Suspect]
     Active Substance: AMANTADINE HYDROCHLORIDE
     Indication: Rabies
  2. MIDAZOLAM [Concomitant]
     Active Substance: MIDAZOLAM
     Indication: Rabies
  3. KETAMINE [Concomitant]
     Active Substance: KETAMINE
     Indication: Rabies

REACTIONS (1)
  - Drug ineffective for unapproved indication [Fatal]
